FAERS Safety Report 11506313 (Version 1)
Quarter: 2015Q3

REPORT INFORMATION
  Report Type: Spontaneous
  Country: US (occurrence: US)
  Receive Date: 20150915
  Receipt Date: 20150915
  Transmission Date: 20151125
  Serious: No
  Sender: FDA-Public Use
  Company Number: US-ROCHE-751551

PATIENT
  Age: 52 Year
  Sex: Male
  Weight: 72.6 kg

DRUGS (4)
  1. PEGASYS [Suspect]
     Active Substance: PEGINTERFERON ALFA-2A
     Route: 058
  2. RIBASPHERE [Suspect]
     Active Substance: RIBAVIRIN
     Indication: CHRONIC HEPATITIS C
     Dosage: 3 CAPSULES TWICE DAILY
     Route: 048
  3. PEGASYS [Suspect]
     Active Substance: PEGINTERFERON ALFA-2A
     Indication: CHRONIC HEPATITIS C
     Dosage: FORM: PRE-FILLED SYRINGE; MEDICATION ERROR
     Route: 058
  4. EUFLEXXA [Concomitant]
     Active Substance: HYALURONATE SODIUM
     Dosage: DRUG REPORTED AS UFLEXA; INDICATION: FOR KNEE
     Route: 065

REACTIONS (8)
  - Irritability [Unknown]
  - Drug dose omission [Unknown]
  - Procedural complication [Unknown]
  - Injury associated with device [Unknown]
  - Product quality issue [Unknown]
  - Influenza [Unknown]
  - Depression [Unknown]
  - Mood swings [Unknown]

NARRATIVE: CASE EVENT DATE: 20100611
